FAERS Safety Report 8091339-X (Version None)
Quarter: 2012Q1

REPORT INFORMATION
  Report Type: 
  Country: None (occurrence: None)
  Receive Date: 20120131
  Receipt Date: 20120120
  Transmission Date: 20120608
  Serious: Yes (Other)
  Sender: FDA-Public Use
  Company Number: JP-ELI_LILLY_AND_COMPANY-JP201108000871

PATIENT
  Age: 37 Year
  Sex: Female
  Weight: 43.2 kg

DRUGS (12)
  1. CLONAZEPAM [Concomitant]
     Route: 048
  2. GASCON [Concomitant]
     Route: 048
  3. FENTANYL [Concomitant]
  4. KETALAR [Concomitant]
     Route: 042
  5. CYMBALTA [Suspect]
     Indication: DEPRESSION
     Dosage: 20 MG, QD
     Route: 048
     Dates: start: 20110629, end: 20110630
  6. PAXIL [Concomitant]
     Indication: DEPRESSION
     Dosage: UNK
     Dates: end: 20110628
  7. MAGNESIUM SULFATE [Concomitant]
     Route: 048
  8. DEPAS [Concomitant]
     Route: 048
  9. DICLOFENAC SODIUM [Concomitant]
     Route: 048
  10. FENTANYL-100 [Concomitant]
     Route: 062
  11. ANTIBIOTICS-RESISTANT LACTIC ACID BACTERIAE [Concomitant]
     Route: 048
  12. GASMOTIN [Concomitant]
     Route: 048

REACTIONS (1)
  - HEPATIC FUNCTION ABNORMAL [None]
